FAERS Safety Report 11339123 (Version 1)
Quarter: 2015Q3

REPORT INFORMATION
  Report Type: Spontaneous
  Country: US (occurrence: US)
  Receive Date: 20150803
  Receipt Date: 20150803
  Transmission Date: 20151125
  Serious: No
  Sender: FDA-Public Use
  Company Number: US-ELI_LILLY_AND_COMPANY-US200709003940

PATIENT
  Age: 17 Year
  Sex: Male
  Weight: 74.38 kg

DRUGS (1)
  1. STRATTERA [Suspect]
     Active Substance: ATOMOXETINE HYDROCHLORIDE
     Indication: ATTENTION DEFICIT/HYPERACTIVITY DISORDER
     Dosage: 40 MG, EACH MORNING
     Dates: start: 20070601

REACTIONS (6)
  - Retrograde ejaculation [Recovered/Resolved]
  - Penile pain [Recovered/Resolved]
  - Abdominal pain upper [Recovered/Resolved]
  - Urinary hesitation [Recovered/Resolved]
  - Semenuria [Recovered/Resolved]
  - Dysuria [Recovered/Resolved]

NARRATIVE: CASE EVENT DATE: 20070607
